FAERS Safety Report 12094877 (Version 5)
Quarter: 2016Q2

REPORT INFORMATION
  Report Type: Report from Study
  Country: CO (occurrence: CO)
  Receive Date: 20160219
  Receipt Date: 20160615
  Transmission Date: 20160815
  Serious: Yes (Hospitalization)
  Sender: FDA-Public Use
  Company Number: PHHY2016CO022437

PATIENT
  Sex: Female
  Weight: 23 kg

DRUGS (2)
  1. EXJADE [Suspect]
     Active Substance: DEFERASIROX
     Indication: SICKLE CELL ANAEMIA
     Dosage: 500 MG, QOD
     Route: 048
     Dates: start: 20140217, end: 2015
  2. EXJADE [Suspect]
     Active Substance: DEFERASIROX
     Dosage: 750 MG, QOD
     Route: 048
     Dates: start: 2015

REACTIONS (8)
  - Arthralgia [Unknown]
  - Yellow skin [Not Recovered/Not Resolved]
  - Skin discolouration [Unknown]
  - Pleural effusion [Unknown]
  - Pneumonia [Recovered/Resolved]
  - Sickle cell anaemia with crisis [Not Recovered/Not Resolved]
  - Infection [Unknown]
  - Back pain [Unknown]
